FAERS Safety Report 5653049-5 (Version None)
Quarter: 2008Q1

REPORT INFORMATION
  Report Type: 
  Country: None (occurrence: None)
  Receive Date: 20080306
  Receipt Date: 20080227
  Transmission Date: 20080703
  Serious: Yes (Hospitalization, Other)
  Sender: FDA-Public Use
  Company Number: BE-BAYER-200813785GPV

PATIENT
  Age: 59 Year
  Sex: Male
  Weight: 89 kg

DRUGS (4)
  1. SORAFENIB [Suspect]
     Indication: NON-SMALL CELL LUNG CANCER
     Dosage: TOTAL DAILY DOSE: 400 MG
     Route: 048
     Dates: start: 20080204, end: 20080220
  2. CISPLATIN [Suspect]
     Indication: NON-SMALL CELL LUNG CANCER
     Route: 042
     Dates: start: 20080204, end: 20080204
  3. GEMCITABINE [Suspect]
     Indication: NON-SMALL CELL LUNG CANCER
     Route: 042
     Dates: start: 20080204, end: 20080211
  4. GEMCITABINE [Suspect]
     Route: 042
     Dates: start: 20080211, end: 20080211

REACTIONS (1)
  - CEREBROVASCULAR ACCIDENT [None]
